FAERS Safety Report 9654755 (Version 2)
Quarter: 2013Q4

REPORT INFORMATION
  Report Type: Spontaneous
  Country: US (occurrence: US)
  Receive Date: 20131029
  Receipt Date: 20131029
  Transmission Date: 20140711
  Serious: Yes (Death, Hospitalization, Other)
  Sender: FDA-Public Use
  Company Number: US-NAPPMUNDI-USA-2010-0043077

PATIENT
  Age: 16 Month
  Sex: Female

DRUGS (1)
  1. OXYCONTIN TABLETS [Suspect]
     Indication: PRODUCT USED FOR UNKNOWN INDICATION

REACTIONS (8)
  - Accidental overdose [Fatal]
  - Drug screen positive [Fatal]
  - Accidental exposure to product by child [Unknown]
  - Respiratory depression [Unknown]
  - Brain death [Fatal]
  - Fatigue [Unknown]
  - Agitation [Unknown]
  - Malaise [Unknown]
